FAERS Safety Report 5707245-9 (Version None)
Quarter: 2008Q2

REPORT INFORMATION
  Report Type: 
  Country: None (occurrence: None)
  Receive Date: 20080414
  Receipt Date: 20080414
  Transmission Date: 20081010
  Serious: No
  Sender: FDA-Public Use
  Company Number: None

PATIENT
  Age: 9 Year
  Sex: Male
  Weight: 30.391 kg

DRUGS (2)
  1. SINGULAIR [Suspect]
     Indication: SEASONAL ALLERGY
     Dosage: 1 TAB PO DAILY
     Dates: start: 20080408, end: 20080411
  2. SINGULAIR [Suspect]
     Indication: SINUS HEADACHE
     Dosage: 1 TAB PO DAILY
     Dates: start: 20080408, end: 20080411

REACTIONS (6)
  - AGGRESSION [None]
  - ANGER [None]
  - CRYING [None]
  - MOOD ALTERED [None]
  - PERSONALITY CHANGE [None]
  - SCREAMING [None]
